FAERS Safety Report 24002561 (Version 1)
Quarter: 2024Q2

REPORT INFORMATION
  Report Type: Report from Study
  Country: US (occurrence: US)
  Receive Date: 20240623
  Receipt Date: 20240623
  Transmission Date: 20240715
  Serious: Yes (Other)
  Sender: FDA-Public Use
  Company Number: US-ABBVIE-5807308

PATIENT
  Sex: Female

DRUGS (5)
  1. RINVOQ [Suspect]
     Active Substance: UPADACITINIB
     Indication: Rheumatoid arthritis
     Route: 048
     Dates: start: 20230901
  2. SYNTHROID [Concomitant]
     Active Substance: LEVOTHYROXINE SODIUM
     Indication: Hypothyroidism
  3. PEPCID [Concomitant]
     Active Substance: FAMOTIDINE
     Indication: Gastrooesophageal reflux disease
  4. CARVEDILOL [Concomitant]
     Active Substance: CARVEDILOL
     Indication: Ventricular extrasystoles
     Dosage: 6.25MG TWICE A DAY
  5. Celibrex [Concomitant]
     Indication: Rheumatoid arthritis
     Dates: start: 20240501

REACTIONS (3)
  - Chondroplasty [Unknown]
  - Hip arthroplasty [Unknown]
  - Pain [Recovering/Resolving]
